FAERS Safety Report 8426516-9 (Version None)
Quarter: 2012Q2

REPORT INFORMATION
  Report Type: 
  Country: None (occurrence: None)
  Receive Date: 20120604
  Receipt Date: 20120528
  Transmission Date: 20120825
  Serious: Yes (Hospitalization)
  Sender: FDA-Public Use
  Company Number: 2012SP029461

PATIENT
  Age: 70 Year
  Sex: Female
  Weight: 42.1 kg

DRUGS (17)
  1. PEGINTERFERON ALFA-2B [Suspect]
     Indication: HEPATITIS C
     Dosage: 80 MCG/KG;QW;UNK
     Dates: start: 20111207, end: 20120515
  2. PEGINTERFERON ALFA-2B [Suspect]
     Indication: HEPATITIS C
     Dosage: 300 MG;BID;UNK
     Dates: start: 20111207, end: 20120521
  3. PRIMPERAN TAB [Concomitant]
  4. KETOPROFEN [Concomitant]
  5. GASMOTIN [Concomitant]
  6. HIRUDOID [Concomitant]
  7. LOXOPROFEN [Concomitant]
  8. TALION [Concomitant]
  9. RIBAVIRIN [Suspect]
     Indication: HEPATITIS C
     Dosage: ;UNK;UNK
     Dates: start: 20111207, end: 20120521
  10. FAMOTIDINE [Concomitant]
  11. CELEBREX [Concomitant]
  12. RINDERON V [Concomitant]
  13. SODIUM HYALURONATE [Concomitant]
  14. FORTEO [Concomitant]
  15. ALLEGRA [Concomitant]
  16. SELBEX [Concomitant]
  17. NEGMIN [Concomitant]

REACTIONS (1)
  - CHONDROCALCINOSIS PYROPHOSPHATE [None]
